FAERS Safety Report 16522455 (Version 4)
Quarter: 2019Q3

REPORT INFORMATION
  Report Type: Spontaneous
  Country: US (occurrence: US)
  Receive Date: 20190703
  Receipt Date: 20190815
  Transmission Date: 20191004
  Serious: No
  Sender: FDA-Public Use
  Company Number: US-PFIZER INC-2019283220

PATIENT
  Age: 58 Year
  Sex: Male
  Weight: 124.72 kg

DRUGS (8)
  1. LYRICA [Suspect]
     Active Substance: PREGABALIN
     Indication: DIABETIC NEUROPATHY
     Dosage: 350 MG, 3X/DAY
     Route: 048
     Dates: start: 20170808, end: 20190313
  2. LYRICA [Suspect]
     Active Substance: PREGABALIN
     Indication: RESTLESS LEGS SYNDROME
     Dosage: 50 MG, 3X/DAY (TAKE 1 CAPSULE (50 MG TOTAL)
     Route: 048
  3. LYRICA [Suspect]
     Active Substance: PREGABALIN
     Indication: FIBROMYALGIA
  4. LYRICA [Suspect]
     Active Substance: PREGABALIN
     Indication: HYPOXIA
  5. LYRICA [Suspect]
     Active Substance: PREGABALIN
     Indication: PAIN IN EXTREMITY
  6. LYRICA [Suspect]
     Active Substance: PREGABALIN
     Indication: TYPE 2 DIABETES MELLITUS
  7. LYRICA [Suspect]
     Active Substance: PREGABALIN
     Indication: GOUT
     Dosage: 2 DF, 1X/DAY
  8. LYRICA [Suspect]
     Active Substance: PREGABALIN
     Indication: PNEUMONIA

REACTIONS (2)
  - Product dose omission [Unknown]
  - Overdose [Unknown]
